FAERS Safety Report 10510637 (Version 1)
Quarter: 2014Q3

REPORT INFORMATION
  Report Type: Spontaneous
  Country: US (occurrence: None)
  Receive Date: 20140918
  Receipt Date: 20140918
  Transmission Date: 20150326
  Serious: Yes (Other)
  Sender: FDA-Public Use
  Company Number: 2014SCPR009155

PATIENT
  Sex: Female

DRUGS (1)
  1. MEGESTROL ACETATE. [Suspect]
     Active Substance: MEGESTROL ACETATE
     Indication: PRODUCT USED FOR UNKNOWN INDICATION

REACTIONS (1)
  - Diabetes mellitus [None]

NARRATIVE: CASE EVENT DATE: 201309
